FAERS Safety Report 19009183 (Version 3)
Quarter: 2021Q2

REPORT INFORMATION
  Report Type: Spontaneous
  Country: JP (occurrence: JP)
  Receive Date: 20210315
  Receipt Date: 20210416
  Transmission Date: 20210717
  Serious: Yes (Hospitalization)
  Sender: FDA-Public Use
  Company Number: JP-ABBVIE-21K-087-3813674-00

PATIENT
  Age: 43 Year
  Sex: Female

DRUGS (7)
  1. MESALAZINE [Concomitant]
     Active Substance: MESALAMINE
     Indication: CROHN^S DISEASE
     Route: 048
     Dates: start: 20110606
  2. HUMIRA [Suspect]
     Active Substance: ADALIMUMAB
     Indication: CROHN^S DISEASE
     Route: 058
     Dates: start: 20160509
  3. CLOSTRIDIUM BUTYRICUM [Concomitant]
     Active Substance: CLOSTRIDIUM BUTYRICUM SPORES STRAIN M-55
     Indication: DYSBIOSIS
     Route: 048
     Dates: start: 20140701
  4. DIENOGEST [Concomitant]
     Active Substance: DIENOGEST
     Indication: ENDOMETRIOSIS
     Route: 048
     Dates: start: 20141022
  5. LACTOMIN [Concomitant]
     Active Substance: DIETARY SUPPLEMENT\PROBIOTICS
     Indication: GASTROINTESTINAL DISORDER
     Route: 048
     Dates: start: 20140701
  6. HUMIRA [Suspect]
     Active Substance: ADALIMUMAB
     Indication: CROHN^S DISEASE
     Dosage: MAINTENANCE THERAPY WITH DOUBLE AMOUNT?INCREASED DOSE
     Route: 058
     Dates: end: 20200622
  7. ELENTAL [Concomitant]
     Active Substance: AMINO ACIDS\CARBOHYDRATES\MINERALS\SOYBEAN OIL\VITAMINS
     Indication: CROHN^S DISEASE
     Route: 048
     Dates: start: 20140701

REACTIONS (2)
  - Nephropathy [Recovering/Resolving]
  - Henoch-Schonlein purpura [Recovering/Resolving]

NARRATIVE: CASE EVENT DATE: 20200428
